FAERS Safety Report 22337652 (Version 1)
Quarter: 2023Q2

REPORT INFORMATION
  Report Type: Spontaneous
  Country: AU (occurrence: AU)
  Receive Date: 20230518
  Receipt Date: 20230518
  Transmission Date: 20230722
  Serious: Yes (Life-Threatening)
  Sender: FDA-Public Use
  Company Number: AU-GUERBET / ASPEN AUSTRALIA-AU-20230044

PATIENT
  Age: 38 Year
  Sex: Female
  Weight: 56 kg

DRUGS (9)
  1. DOTAREM [Suspect]
     Active Substance: GADOTERATE MEGLUMINE
     Indication: Magnetic resonance imaging spinal
     Route: 042
     Dates: start: 20230503, end: 20230503
  2. ZOLOFT [Concomitant]
     Active Substance: SERTRALINE HYDROCHLORIDE
     Indication: Product used for unknown indication
  3. EPILIM [Concomitant]
     Active Substance: VALPROATE SODIUM
     Indication: Product used for unknown indication
  4. Eutroxisig [Concomitant]
     Indication: Product used for unknown indication
  5. DEXAMETHASONE [Concomitant]
     Active Substance: DEXAMETHASONE
     Indication: Product used for unknown indication
  6. ABILIFY [Concomitant]
     Active Substance: ARIPIPRAZOLE
     Indication: Product used for unknown indication
  7. CALTRATE [Concomitant]
     Active Substance: CALCIUM CARBONATE
     Indication: Product used for unknown indication
  8. Ostelin [Concomitant]
     Indication: Product used for unknown indication
  9. MAGNESIUM [Concomitant]
     Active Substance: MAGNESIUM
     Indication: Product used for unknown indication

REACTIONS (4)
  - Rash [Recovered/Resolved]
  - Oropharyngeal swelling [Recovered/Resolved]
  - Dysphonia [Recovered/Resolved]
  - Throat irritation [Recovered/Resolved]

NARRATIVE: CASE EVENT DATE: 20230503
